FAERS Safety Report 4674737-3 (Version None)
Quarter: 2005Q2

REPORT INFORMATION
  Report Type: 
  Country: None (occurrence: None)
  Receive Date: 20050526
  Receipt Date: 20050514
  Transmission Date: 20051028
  Serious: Yes (Hospitalization, Other)
  Sender: FDA-Public Use
  Company Number: PHHO2005IT07917

PATIENT
  Age: 65 Year
  Sex: Male
  Weight: 82 kg

DRUGS (1)
  1. IMATINIB [Suspect]
     Indication: CHRONIC MYELOID LEUKAEMIA
     Dosage: 500 MG, QD
     Route: 048
     Dates: start: 20001228, end: 20050415

REACTIONS (2)
  - HYPERPLASIA [None]
  - TESTICULAR SWELLING [None]
